FAERS Safety Report 6845548-5 (Version None)
Quarter: 2010Q3

REPORT INFORMATION
  Report Type: 
  Country: None (occurrence: None)
  Receive Date: 20100715
  Receipt Date: 20090508
  Transmission Date: 20110219
  Serious: Yes (Hospitalization, Other)
  Sender: FDA-Public Use
  Company Number: CA-GENENTECH-280919

PATIENT
  Sex: Female
  Weight: 42.177 kg

DRUGS (3)
  1. OMALIZUMAB [Suspect]
     Indication: ASTHMA
     Dosage: 300 MG, Q2W
     Route: 058
     Dates: start: 20051207
  2. CORTISONE [Concomitant]
     Indication: PRODUCT USED FOR UNKNOWN INDICATION
  3. DIURETICS [Concomitant]
     Indication: PRODUCT USED FOR UNKNOWN INDICATION

REACTIONS (22)
  - ABDOMINAL PAIN [None]
  - ASTHENIA [None]
  - BLOOD PRESSURE DECREASED [None]
  - CRYING [None]
  - DYSPNOEA EXERTIONAL [None]
  - GASTROINTESTINAL CARCINOMA [None]
  - GASTROINTESTINAL DISORDER [None]
  - HAEMATOCHEZIA [None]
  - HEART RATE INCREASED [None]
  - HERNIA [None]
  - INTESTINAL OPERATION [None]
  - LUNG NEOPLASM [None]
  - LUNG OPERATION [None]
  - NERVOUSNESS [None]
  - PNEUMONIA [None]
  - POLYP [None]
  - RHINITIS ALLERGIC [None]
  - SNEEZING [None]
  - SURGERY [None]
  - SWELLING FACE [None]
  - VASCULAR OPERATION [None]
  - WEIGHT DECREASED [None]
